FAERS Safety Report 13402274 (Version 1)
Quarter: 2017Q2

REPORT INFORMATION
  Report Type: Spontaneous
  Country: US (occurrence: US)
  Receive Date: 20170404
  Receipt Date: 20170404
  Transmission Date: 20170830
  Serious: No
  Sender: FDA-Public Use
  Company Number: US-BAYER-2017-064601

PATIENT
  Age: 2 Year
  Sex: Male
  Weight: 16 kg

DRUGS (1)
  1. CLARITIN [Suspect]
     Active Substance: LORATADINE
     Dosage: UNK,2 TO 3 TABLETS
     Route: 048
     Dates: start: 20170404, end: 20170404

REACTIONS (1)
  - Overdose [Unknown]
